FAERS Safety Report 6108620-3 (Version None)
Quarter: 2009Q1

REPORT INFORMATION
  Report Type: 
  Country: None (occurrence: None)
  Receive Date: 20090305
  Receipt Date: 20090223
  Transmission Date: 20090719
  Serious: Yes (Disabling)
  Sender: FDA-Public Use
  Company Number: OSCN-NO-0902S-0115

PATIENT
  Age: 66 Year
  Sex: Male

DRUGS (14)
  1. OMNISCAN [Suspect]
     Indication: DRUG USE FOR UNKNOWN INDICATION
     Dosage: 40 ML, SINGLE DOSE, I.V.
     Route: 042
     Dates: start: 20040513, end: 20040513
  2. OMNISCAN [Suspect]
     Indication: DRUG USE FOR UNKNOWN INDICATION
     Dosage: 40 ML, SINGLE DOSE, I.V.
     Route: 042
     Dates: start: 20050411, end: 20050411
  3. ERYTHROPOIETIN (NEORECORMON) [Concomitant]
  4. SACCHARATED IRON OXIDE (VENOFER) [Concomitant]
  5. ALFACALCIDOL (ETALPHA) [Concomitant]
  6. ENALAPRIL (RENITEC) [Concomitant]
  7. FUROSEMIDE (DIURAL) [Concomitant]
  8. METOPROLOL SUCCINATE (SELO-ZOK) [Concomitant]
  9. ACETYLSALICYLIC ACID (MAGNYL DAK) [Concomitant]
  10. NORVASC [Concomitant]
  11. INSULIN HUMAN (INSULATARD) [Concomitant]
  12. ALLOPURINOL [Concomitant]
  13. CALCIUM ACETATE (PHOS-EX) [Concomitant]
  14. ZOCOR [Concomitant]

REACTIONS (1)
  - NEPHROGENIC SYSTEMIC FIBROSIS [None]
